FAERS Safety Report 8927105 (Version 1)
Quarter: 2012Q4

REPORT INFORMATION
  Report Type: 
  Country: US (occurrence: US)
  Receive Date: 20121127
  Receipt Date: 20121127
  Transmission Date: 20130627
  Serious: No
  Sender: FDA-Public Use
  Company Number: US-MYLANLABS-2012S1019258

PATIENT
  Age: 63 Year
  Sex: Female
  Weight: 58.97 kg

DRUGS (3)
  1. MONTELUKAST SODIUM [Suspect]
     Indication: ASTHMA
     Route: 048
     Dates: start: 20120820
  2. ZYRTEC [Concomitant]
  3. PROVENTIL [Concomitant]

REACTIONS (4)
  - Drug effect decreased [Recovered/Resolved]
  - Dyspnoea [Recovered/Resolved]
  - Incorrect drug dosage form administered [Not Recovered/Not Resolved]
  - Wrong technique in drug usage process [None]
